FAERS Safety Report 23926610 (Version 1)
Quarter: 2024Q2

REPORT INFORMATION
  Report Type: Report from Study
  Country: BR (occurrence: BR)
  Receive Date: 20240531
  Receipt Date: 20240531
  Transmission Date: 20240716
  Serious: Yes (Other)
  Sender: FDA-Public Use
  Company Number: BR-BAYER-2024A062882

PATIENT
  Age: 73 Year
  Sex: Male

DRUGS (2)
  1. NEXAVAR [Suspect]
     Active Substance: SORAFENIB
     Indication: Hepatocellular carcinoma
     Dosage: UNK
  2. NEXAVAR [Suspect]
     Active Substance: SORAFENIB
     Indication: Hepatic cancer

REACTIONS (6)
  - Gait inability [None]
  - Pain [None]
  - Blister [Recovering/Resolving]
  - Skin exfoliation [None]
  - Skin laxity [None]
  - Blister [Recovering/Resolving]

NARRATIVE: CASE EVENT DATE: 20240201
